FAERS Safety Report 23307997 (Version 1)
Quarter: 2023Q4

REPORT INFORMATION
  Report Type: Spontaneous
  Country: PT (occurrence: PT)
  Receive Date: 20231218
  Receipt Date: 20231218
  Transmission Date: 20240110
  Serious: Yes (Other)
  Sender: FDA-Public Use
  Company Number: None

PATIENT
  Age: 31 Year
  Sex: Female

DRUGS (6)
  1. CEFAZOLIN [Suspect]
     Active Substance: CEFAZOLIN
     Indication: Induction of anaesthesia
     Dosage: 2 GRAM
     Route: 042
     Dates: start: 20210422, end: 20210422
  2. ROCURONIUM BROMIDE [Concomitant]
     Active Substance: ROCURONIUM BROMIDE
     Indication: Induction of anaesthesia
     Dosage: 50 MILLIGRAM
     Route: 042
     Dates: start: 20210422, end: 20210422
  3. DEXAMETHASONE [Concomitant]
     Active Substance: DEXAMETHASONE
     Indication: Induction of anaesthesia
     Dosage: 4 MILLIGRAM
     Route: 042
     Dates: start: 20210422, end: 20210422
  4. FENTANYL [Concomitant]
     Active Substance: FENTANYL\FENTANYL CITRATE
     Indication: Induction of anaesthesia
     Dosage: UNKNOWN
     Route: 042
     Dates: start: 20210422, end: 20210422
  5. LIDOCAINE [Concomitant]
     Active Substance: LIDOCAINE
     Indication: Induction of anaesthesia
     Dosage: 40 MILLIGRAM
     Route: 042
     Dates: start: 20210422, end: 20210422
  6. PROPOFOL [Concomitant]
     Active Substance: PROPOFOL
     Indication: Induction of anaesthesia
     Dosage: UNKNOWN
     Route: 042
     Dates: start: 20210422, end: 20210422

REACTIONS (4)
  - Rash maculo-papular [Recovered/Resolved]
  - Face oedema [Recovered/Resolved]
  - Haematoma [Recovered/Resolved]
  - Localised oedema [Recovered/Resolved]

NARRATIVE: CASE EVENT DATE: 20210422
